FAERS Safety Report 11569813 (Version 3)
Quarter: 2015Q4

REPORT INFORMATION
  Report Type: Report from Study
  Country: BR (occurrence: BR)
  Receive Date: 20150929
  Receipt Date: 20151203
  Transmission Date: 20160304
  Serious: Yes (Other)
  Sender: FDA-Public Use
  Company Number: BR-BAYER-2015-427447

PATIENT
  Age: 69 Year
  Sex: Male
  Weight: 49 kg

DRUGS (4)
  1. NEXAVAR [Suspect]
     Active Substance: SORAFENIB
     Indication: HEPATIC NEOPLASM
     Dosage: 400 MG, QD
     Route: 048
     Dates: start: 20150625, end: 20150701
  2. ANCORON [Concomitant]
     Active Substance: AMIODARONE HYDROCHLORIDE
     Indication: ARRHYTHMIA
     Dosage: 1 DF, QD
     Route: 048
     Dates: start: 2011, end: 201508
  3. NEXAVAR [Suspect]
     Active Substance: SORAFENIB
     Indication: HEPATIC NEOPLASM
     Dosage: 800 MG, QD (2 TABLETS IN THE MORNING/2 IN THE AFTERNOON)
     Route: 048
     Dates: start: 20150702, end: 20150910
  4. NAPRIX D [Concomitant]
     Indication: HYPERTENSION
     Dosage: 1 DF, QD
     Route: 048
     Dates: start: 2011

REACTIONS (13)
  - Coordination abnormal [Recovering/Resolving]
  - Peripheral swelling [Recovering/Resolving]
  - Dry mouth [Recovering/Resolving]
  - Anaemia [Unknown]
  - Dyspepsia [Recovering/Resolving]
  - Urinary retention [Recovering/Resolving]
  - Hepatomegaly [Not Recovered/Not Resolved]
  - Decreased appetite [Recovered/Resolved]
  - Dysphonia [Recovering/Resolving]
  - Hepatic congestion [Recovering/Resolving]
  - Unevaluable event [Recovering/Resolving]
  - Muscular weakness [Recovering/Resolving]
  - Dry throat [None]

NARRATIVE: CASE EVENT DATE: 2015
